FAERS Safety Report 11887718 (Version 2)
Quarter: 2016Q4

REPORT INFORMATION
  Report Type: Spontaneous
  Country: DK (occurrence: DK)
  Receive Date: 20160105
  Receipt Date: 20161130
  Transmission Date: 20170206
  Serious: Yes (Disabling)
  Sender: FDA-Public Use
  Company Number: DK-PFIZER INC-2015465039

PATIENT
  Age: 53 Year
  Sex: Female

DRUGS (8)
  1. CARBOPLATIN. [Suspect]
     Active Substance: CARBOPLATIN
     Indication: OVARIAN CANCER STAGE III
     Dosage: 600, CYCLIC
     Route: 042
     Dates: start: 20120119, end: 20120210
  2. CARBOPLATIN. [Suspect]
     Active Substance: CARBOPLATIN
     Dosage: 610, CYCLIC ADMINISTERED ON THE FOLLOWING DATES: 02MAR, 23MAR, 16APR AND 07MAY2012
     Route: 042
     Dates: start: 20120302, end: 20120507
  3. CETIRIZINE [Concomitant]
     Active Substance: CETIRIZINE HYDROCHLORIDE
     Dosage: 10 MG, AS NEEDED
     Dates: start: 20120217
  4. PREDNISOLON /00016201/ [Concomitant]
     Active Substance: PREDNISOLONE
     Dosage: 25-50 MG IN CONNECTION WITH CHEMO
     Dates: start: 20120119, end: 20120507
  5. TAXOL [Suspect]
     Active Substance: PACLITAXEL
     Indication: OVARIAN CANCER STAGE III
     Dosage: 330, CYCLIC ON FOLLWING DATES:19JAN, 10FEB, 02MAR, 23MAR, 16APR AND 07MAY2012
     Route: 042
     Dates: start: 20120119, end: 20120507
  6. MOTILIUM [Concomitant]
     Active Substance: DOMPERIDONE
     Dosage: 20 MG, AS NEEDED
     Dates: start: 20120119
  7. TRAMADOL. [Concomitant]
     Active Substance: TRAMADOL
     Dosage: 50 MG, AS NEEDED
     Dates: start: 20120309
  8. ZOFRAN [Concomitant]
     Active Substance: ONDANSETRON HYDROCHLORIDE
     Dosage: 8 MG, 2X/DAY, IN CONNECTION WITH CHEMO
     Dates: start: 20120119, end: 20120507

REACTIONS (3)
  - Pain in extremity [Not Recovered/Not Resolved]
  - Sensory disturbance [Not Recovered/Not Resolved]
  - Neuralgia [Not Recovered/Not Resolved]

NARRATIVE: CASE EVENT DATE: 2012
